FAERS Safety Report 7639567-9 (Version None)
Quarter: 2011Q3

REPORT INFORMATION
  Report Type: 
  Country: None (occurrence: None)
  Receive Date: 20110722
  Receipt Date: 20110708
  Transmission Date: 20111222
  Serious: Yes (Hospitalization, Other)
  Sender: FDA-Public Use
  Company Number: 2011MA008252

PATIENT
  Age: 72 Year
  Sex: Female

DRUGS (4)
  1. RIFAMPIN [Suspect]
     Indication: RENAL TUBERCULOSIS
  2. ETHAMBUTOL HYDROCHLORIDE [Suspect]
     Indication: RENAL TUBERCULOSIS
  3. ISONIAZID [Suspect]
     Indication: RENAL TUBERCULOSIS
  4. PYRAZINAMIDE [Suspect]
     Indication: RENAL TUBERCULOSIS

REACTIONS (3)
  - ASPARTATE AMINOTRANSFERASE INCREASED [None]
  - ALANINE AMINOTRANSFERASE INCREASED [None]
  - DRUG RASH WITH EOSINOPHILIA AND SYSTEMIC SYMPTOMS [None]
